FAERS Safety Report 9173530 (Version 4)
Quarter: 2013Q2

REPORT INFORMATION
  Report Type: Spontaneous
  Country: FI (occurrence: FI)
  Receive Date: 20130320
  Receipt Date: 20130515
  Transmission Date: 20140414
  Serious: Yes (Other)
  Sender: FDA-Public Use
  Company Number: FI-ELI_LILLY_AND_COMPANY-FI201303002825

PATIENT
  Sex: Male

DRUGS (6)
  1. FORSTEO [Suspect]
     Indication: OSTEOPOROSIS
     Dosage: 20 UG, UNK
     Dates: start: 201004, end: 20120401
  2. CALCICHEW-D3 FORTE [Concomitant]
  3. VITAMIN D [Concomitant]
     Dosage: 7.5 MG, QD (DURING WINTER)
  4. PREDNISOLONE [Concomitant]
     Dosage: 10- 20 MG, QD
     Dates: start: 1983
  5. ARAVA [Concomitant]
     Dosage: UNK
  6. BISOPROLOL [Concomitant]
     Dosage: 2.5 MG, QD
     Dates: start: 201104

REACTIONS (2)
  - Pancreatic carcinoma [Unknown]
  - Diabetes mellitus [Unknown]
